FAERS Safety Report 22248091 (Version 1)
Quarter: 2023Q2

REPORT INFORMATION
  Report Type: Spontaneous
  Country: TH (occurrence: TH)
  Receive Date: 20230425
  Receipt Date: 20230425
  Transmission Date: 20230721
  Serious: Yes (Other)
  Sender: FDA-Public Use
  Company Number: TH-ALKEM LABORATORIES LIMITED-TH-ALKEM-2023-03622

PATIENT
  Age: 12 Year
  Sex: Male

DRUGS (12)
  1. LACOSAMIDE [Suspect]
     Active Substance: LACOSAMIDE
     Indication: Status epilepticus
     Dosage: 10 MILLIGRAM/KILOGRAM/DOSE (LOADING DOSE)
     Route: 042
  2. LACOSAMIDE [Suspect]
     Active Substance: LACOSAMIDE
     Indication: Seizure
     Dosage: 5 MILLIGRAM/KILOGRAM/DOSE (MAINTENANCE DOSE)
     Route: 042
  3. CLOBAZAM [Concomitant]
     Active Substance: CLOBAZAM
     Indication: Status epilepticus
     Dosage: UNK
     Route: 065
  4. CLOBAZAM [Concomitant]
     Active Substance: CLOBAZAM
     Indication: Seizure
  5. DIAZEPAM [Concomitant]
     Active Substance: DIAZEPAM
     Indication: Status epilepticus
     Dosage: UNK
     Route: 065
  6. DIAZEPAM [Concomitant]
     Active Substance: DIAZEPAM
     Indication: Seizure
  7. LEVETIRACETAM [Concomitant]
     Active Substance: LEVETIRACETAM
     Indication: Status epilepticus
     Dosage: UNK
     Route: 065
  8. LEVETIRACETAM [Concomitant]
     Active Substance: LEVETIRACETAM
     Indication: Seizure
  9. PERAMPANEL [Concomitant]
     Active Substance: PERAMPANEL
     Indication: Status epilepticus
     Dosage: UNK
     Route: 065
  10. PERAMPANEL [Concomitant]
     Active Substance: PERAMPANEL
     Indication: Seizure
  11. TOPIRAMATE [Concomitant]
     Active Substance: TOPIRAMATE
     Indication: Status epilepticus
     Dosage: UNK
     Route: 065
  12. TOPIRAMATE [Concomitant]
     Active Substance: TOPIRAMATE
     Indication: Seizure

REACTIONS (1)
  - Bradycardia [Recovered/Resolved]
